FAERS Safety Report 12373023 (Version 1)
Quarter: 2016Q2

REPORT INFORMATION
  Report Type: Spontaneous
  Country: US (occurrence: US)
  Receive Date: 20160516
  Receipt Date: 20160516
  Transmission Date: 20160815
  Serious: Yes (Life-Threatening, Hospitalization, Other)
  Sender: FDA-Public Use
  Company Number: ADR-2015-01516

PATIENT
  Age: 17 Year
  Sex: Male

DRUGS (9)
  1. SINGULAIR [Suspect]
     Active Substance: MONTELUKAST SODIUM
  2. MIRALAX [Suspect]
     Active Substance: POLYETHYLENE GLYCOL 3350
  3. RITALIN [Suspect]
     Active Substance: METHYLPHENIDATE HYDROCHLORIDE
  4. LIORESAL [Suspect]
     Active Substance: BACLOFEN
     Dosage: 452.5 MCG/DAY
     Route: 037
     Dates: start: 20150501
  5. PERIACTIN [Suspect]
     Active Substance: CYPROHEPTADINE HYDROCHLORIDE
  6. LIORESAL [Suspect]
     Active Substance: BACLOFEN
     Dosage: 451.8 MCG/ML
     Route: 037
  7. CLONIDINE. [Suspect]
     Active Substance: CLONIDINE
  8. MODAFINIL. [Suspect]
     Active Substance: MODAFINIL
  9. ZYRTEC [Suspect]
     Active Substance: CETIRIZINE HYDROCHLORIDE

REACTIONS (4)
  - Unresponsive to stimuli [Recovered/Resolved]
  - Depressed level of consciousness [Unknown]
  - Overdose [Recovered/Resolved]
  - Therapeutic response decreased [Unknown]

NARRATIVE: CASE EVENT DATE: 20150801
